FAERS Safety Report 4852656-7 (Version None)
Quarter: 2005Q4

REPORT INFORMATION
  Report Type: 
  Country: None (occurrence: None)
  Receive Date: 20051213
  Receipt Date: 20051005
  Transmission Date: 20060501
  Serious: Yes (Death, Hospitalization)
  Sender: FDA-Public Use
  Company Number: GB-MERCK-0512GBR00044

PATIENT
  Age: 82 Year
  Sex: Female

DRUGS (17)
  1. BECLOMETHASONE DIPROPIONATE [Concomitant]
     Route: 065
     Dates: start: 19991203
  2. ALUMINUM HYDROXIDE AND MAGNESIUM CARBONATE [Concomitant]
     Route: 065
     Dates: start: 19950704
  3. PHOLCODINE [Concomitant]
     Route: 065
     Dates: start: 20000229
  4. PIROXICAM [Concomitant]
     Route: 065
     Dates: start: 20020503
  5. [THERAPY UNSPECIFIED] [Concomitant]
     Route: 065
     Dates: start: 20021118
  6. NAFRONYL OXALATE [Concomitant]
     Route: 065
     Dates: start: 20021209
  7. VIOXX [Suspect]
     Indication: BACK PAIN
     Route: 048
     Dates: start: 20010508, end: 20021221
  8. VIOXX [Suspect]
     Indication: OSTEOARTHRITIS
     Route: 048
     Dates: start: 20010508, end: 20021221
  9. CANDESARTAN [Concomitant]
     Route: 065
     Dates: start: 20000616
  10. LOPRAZOLAM [Concomitant]
     Route: 065
     Dates: start: 19980409
  11. FUROSEMIDE [Concomitant]
     Route: 065
     Dates: start: 20001023
  12. FERROUS GLUCONATE [Concomitant]
     Route: 065
     Dates: start: 20010917
  13. LANSOPRAZOLE [Concomitant]
     Route: 065
     Dates: start: 20010905
  14. CITALOPRAM [Concomitant]
     Indication: DEPRESSION
     Route: 065
     Dates: start: 20021003
  15. ACETAMINOPHEN [Concomitant]
     Route: 065
     Dates: start: 19970715
  16. RANITIDINE [Concomitant]
     Route: 065
  17. ALBUTEROL [Concomitant]
     Route: 055
     Dates: start: 19990929

REACTIONS (24)
  - BALANCE DISORDER [None]
  - BLOOD ALBUMIN DECREASED [None]
  - BLOOD BICARBONATE INCREASED [None]
  - BLOOD BILIRUBIN INCREASED [None]
  - BLOOD POTASSIUM DECREASED [None]
  - BLOOD UREA DECREASED [None]
  - CARDIOMEGALY [None]
  - CEREBRAL HAEMATOMA [None]
  - CEREBRAL HAEMORRHAGE [None]
  - DIZZINESS [None]
  - FALL [None]
  - HAEMATOCRIT DECREASED [None]
  - HAEMOGLOBIN DECREASED [None]
  - HEAD INJURY [None]
  - HEADACHE [None]
  - LYMPHOCYTE COUNT DECREASED [None]
  - MEAN CELL VOLUME INCREASED [None]
  - NEUTROPENIA [None]
  - PROTEIN TOTAL DECREASED [None]
  - RED BLOOD CELL COUNT DECREASED [None]
  - TACHYCARDIA [None]
  - THROMBOCYTHAEMIA [None]
  - VISUAL DISTURBANCE [None]
  - WHITE BLOOD CELL COUNT INCREASED [None]
